FAERS Safety Report 15766697 (Version 1)
Quarter: 2018Q4

REPORT INFORMATION
  Report Type: Report from Study
  Country: US (occurrence: US)
  Receive Date: 20181227
  Receipt Date: 20181227
  Transmission Date: 20190205
  Serious: Yes (Other)
  Sender: FDA-Public Use
  Company Number: PHEH2018US054625

PATIENT
  Sex: Female
  Weight: 34.47 kg

DRUGS (1)
  1. GLATOPA [Suspect]
     Active Substance: GLATIRAMER ACETATE
     Indication: MULTIPLE SCLEROSIS
     Dosage: 20 MG, QD (ROTATING SITES)
     Route: 058

REACTIONS (3)
  - Pneumonia bacterial [Not Recovered/Not Resolved]
  - Migraine [Not Recovered/Not Resolved]
  - Epilepsy [Not Recovered/Not Resolved]
